FAERS Safety Report 20007483 (Version 2)
Quarter: 2021Q4

REPORT INFORMATION
  Report Type: Spontaneous
  Country: RO (occurrence: RO)
  Receive Date: 20211028
  Receipt Date: 20211117
  Transmission Date: 20220303
  Serious: Yes (Life-Threatening, Hospitalization, Other)
  Sender: FDA-Public Use
  Company Number: RO-MEDO2008-L202109111

PATIENT
  Age: 41 Year
  Sex: Male

DRUGS (8)
  1. LINEZOLID [Suspect]
     Active Substance: LINEZOLID
     Indication: Pneumonia staphylococcal
     Dosage: UNK
  2. LINEZOLID [Suspect]
     Active Substance: LINEZOLID
     Indication: Pyrexia
  3. VANCOMYCIN HYDROCHLORIDE [Suspect]
     Active Substance: VANCOMYCIN HYDROCHLORIDE
     Indication: Endocarditis
     Dosage: UNK
  4. CEFTRIAXONE [Suspect]
     Active Substance: CEFTRIAXONE
     Indication: Pneumonia staphylococcal
     Dosage: UNK
  5. CEFTRIAXONE [Suspect]
     Active Substance: CEFTRIAXONE
     Indication: Endocarditis
  6. CEFTRIAXONE [Suspect]
     Active Substance: CEFTRIAXONE
     Indication: Pyrexia
  7. RIFAMPIN [Suspect]
     Active Substance: RIFAMPIN
     Indication: Pneumonia staphylococcal
     Dosage: UNK
  8. RIFAMPIN [Suspect]
     Active Substance: RIFAMPIN
     Indication: Pyrexia

REACTIONS (1)
  - Drug ineffective [Unknown]
